FAERS Safety Report 23652008 (Version 1)
Quarter: 2024Q1

REPORT INFORMATION
  Report Type: Spontaneous
  Country: CN (occurrence: CN)
  Receive Date: 20240320
  Receipt Date: 20240320
  Transmission Date: 20240409
  Serious: Yes (Hospitalization)
  Sender: FDA-Public Use
  Company Number: CN-ABBVIE-5682992

PATIENT
  Age: 75 Year
  Sex: Male
  Weight: 76 kg

DRUGS (8)
  1. VENETOCLAX [Suspect]
     Active Substance: VENETOCLAX
     Indication: Neoplasm malignant
     Dosage: 300 MILLIGRAM?DAY THREE TO TWENTY EIGHT
     Route: 048
     Dates: start: 20240314, end: 20240317
  2. VENETOCLAX [Suspect]
     Active Substance: VENETOCLAX
     Indication: Neoplasm malignant
     Dosage: 200 MILLIGRAM, DAY TWO
     Route: 048
     Dates: start: 20240313, end: 20240313
  3. VENETOCLAX [Suspect]
     Active Substance: VENETOCLAX
     Indication: Neoplasm malignant
     Dosage: 100 MILLIGRAM, DAY ONE
     Route: 048
     Dates: start: 20240312, end: 20240312
  4. AZACITIDINE [Suspect]
     Active Substance: AZACITIDINE
     Indication: Neoplasm malignant
     Dosage: 100 MILLIGRAM?DAY 5 TO 7
     Route: 058
     Dates: start: 20240315, end: 20240317
  5. AZACITIDINE [Suspect]
     Active Substance: AZACITIDINE
     Indication: Neoplasm malignant
     Dosage: 100 MILLIGRAM?DAY 1
     Route: 058
     Dates: start: 20240311, end: 20240311
  6. AZACITIDINE [Suspect]
     Active Substance: AZACITIDINE
     Indication: Neoplasm malignant
     Dosage: 200 MILLIGRAM?DAY 2
     Route: 058
     Dates: start: 20240312, end: 20240312
  7. AZACITIDINE [Suspect]
     Active Substance: AZACITIDINE
     Indication: Neoplasm malignant
     Dosage: 100 MILLIGRAM?DAY 3
     Route: 058
     Dates: start: 20240313, end: 20240313
  8. AZACITIDINE [Suspect]
     Active Substance: AZACITIDINE
     Indication: Neoplasm malignant
     Dosage: 200 MILLIGRAM?DAY 4
     Route: 058
     Dates: start: 20240314, end: 20240314

REACTIONS (2)
  - Myelosuppression [Unknown]
  - Off label use [Unknown]

NARRATIVE: CASE EVENT DATE: 20240312
